FAERS Safety Report 12913971 (Version 4)
Quarter: 2017Q1

REPORT INFORMATION
  Report Type: Spontaneous
  Country: US (occurrence: US)
  Receive Date: 20161104
  Receipt Date: 20170207
  Transmission Date: 20170428
  Serious: Yes (Hospitalization, Other)
  Sender: FDA-Public Use
  Company Number: US-BAUSCH-BL-2016-025347

PATIENT
  Age: 85 Year
  Sex: Male

DRUGS (3)
  1. PROVENGE [Suspect]
     Active Substance: SIPULEUCEL-T
     Indication: PROSTATE CANCER
     Route: 042
     Dates: start: 20160930, end: 20160930
  2. PROVENGE [Suspect]
     Active Substance: SIPULEUCEL-T
     Route: 042
     Dates: start: 20161223, end: 20161223
  3. PROVENGE [Suspect]
     Active Substance: SIPULEUCEL-T
     Route: 042
     Dates: start: 20161209, end: 20161209

REACTIONS (4)
  - Hospitalisation [Unknown]
  - Sepsis [Unknown]
  - Device related infection [Not Recovered/Not Resolved]
  - Culture positive [Unknown]

NARRATIVE: CASE EVENT DATE: 2016
